FAERS Safety Report 23367686 (Version 1)
Quarter: 2024Q1

REPORT INFORMATION
  Report Type: Report from Study
  Country: ES (occurrence: ES)
  Receive Date: 20240104
  Receipt Date: 20240104
  Transmission Date: 20240410
  Serious: Yes (Hospitalization)
  Sender: FDA-Public Use
  Company Number: ES-JNJFOC-20231273641

PATIENT
  Age: 53 Year
  Sex: Female

DRUGS (2)
  1. RYBREVANT [Suspect]
     Active Substance: AMIVANTAMAB-VMJW
     Indication: Lung adenocarcinoma stage IV
     Route: 065
     Dates: start: 202303
  2. LAZERTINIB [Suspect]
     Active Substance: LAZERTINIB
     Indication: Lung adenocarcinoma stage IV
     Route: 048
     Dates: start: 202303

REACTIONS (1)
  - Pancreatitis acute [Recovered/Resolved]

NARRATIVE: CASE EVENT DATE: 20230701
